FAERS Safety Report 7981392-3 (Version None)
Quarter: 2011Q4

REPORT INFORMATION
  Report Type: 
  Country: None (occurrence: None)
  Receive Date: 20111212
  Receipt Date: 20111130
  Transmission Date: 20120403
  Serious: Yes (Death)
  Sender: FDA-Public Use
  Company Number: 2011MA017333

PATIENT
  Age: 70 Year
  Sex: Female

DRUGS (7)
  1. ONDANSETRON [Concomitant]
  2. GEMCITABINE HYDROCHLORIDE [Suspect]
     Indication: METASTATIC SQUAMOUS CELL CARCINOMA
     Dosage: 1400 MG; IV
     Route: 042
     Dates: start: 20111003, end: 20111122
  3. THERACIM (NO PREF. NAME) [Suspect]
     Indication: METASTATIC SQUAMOUS CELL CARCINOMA
     Dosage: 200 MG;QW;IV
     Route: 042
     Dates: start: 20111025, end: 20111122
  4. DEXAMETHASONE [Concomitant]
  5. SALINE [Concomitant]
  6. CISPLATIN [Concomitant]
  7. IRESSA [Concomitant]

REACTIONS (3)
  - RESPIRATORY ACIDOSIS [None]
  - RESPIRATORY FAILURE [None]
  - SEPTIC SHOCK [None]
